FAERS Safety Report 12140951 (Version 2)
Quarter: 2016Q1

REPORT INFORMATION
  Report Type: Spontaneous
  Country: JP (occurrence: JP)
  Receive Date: 20160303
  Receipt Date: 20160316
  Transmission Date: 20160526
  Serious: Yes (Hospitalization)
  Sender: FDA-Public Use
  Company Number: PHJP2016JP004216

PATIENT
  Age: 49 Year
  Sex: Male

DRUGS (1)
  1. LOCHOL TAB [Suspect]
     Active Substance: FLUVASTATIN SODIUM
     Indication: DYSLIPIDAEMIA
     Dosage: 20 MG, UNK
     Route: 048

REACTIONS (1)
  - Aphasia [Unknown]
